FAERS Safety Report 19674718 (Version 1)
Quarter: 2021Q3

REPORT INFORMATION
  Report Type: Spontaneous
  Country: RU (occurrence: RU)
  Receive Date: 20210809
  Receipt Date: 20210809
  Transmission Date: 20211014
  Serious: Yes (Hospitalization, Other)
  Sender: FDA-Public Use
  Company Number: RU-BAYER-2021-184615

PATIENT
  Age: 57 Year
  Sex: Male

DRUGS (6)
  1. CEFTAROLINE [Concomitant]
     Active Substance: CEFTAROLINE
     Indication: COVID-19
     Dosage: 600 MG, BID
     Route: 030
  2. FRAXIPARINE [Concomitant]
     Active Substance: NADROPARIN CALCIUM
     Indication: COVID-19
     Dosage: UNK UNK, QD
     Route: 058
  3. RIBAVIRIN. [Concomitant]
     Active Substance: RIBAVIRIN
     Indication: COVID-19
     Dosage: 500 MG, BID
  4. UMIFENOVIR. [Concomitant]
     Active Substance: UMIFENOVIR
     Indication: COVID-19
     Dosage: 200 MG, QID
  5. AZITHROMYCIN ANHYDROUS. [Concomitant]
     Active Substance: AZITHROMYCIN ANHYDROUS
     Indication: COVID-19
     Dosage: 500 MG, QD
  6. MOXIFLOXACIN ORAL [Suspect]
     Active Substance: MOXIFLOXACIN
     Indication: COVID-19
     Dosage: 400 MG, QD
     Dates: start: 20200513

REACTIONS (1)
  - COVID-19 pneumonia [Recovered/Resolved]

NARRATIVE: CASE EVENT DATE: 20200614
